FAERS Safety Report 4429128-7 (Version None)
Quarter: 2004Q3

REPORT INFORMATION
  Report Type: 
  Country: None (occurrence: None)
  Receive Date: 20040726
  Receipt Date: 20040310
  Transmission Date: 20050211
  Serious: No
  Sender: FDA-Public Use
  Company Number: USA040361552

PATIENT
  Age: 77 Year
  Sex: Female
  Weight: 70 kg

DRUGS (5)
  1. FORTEO [Suspect]
     Indication: OSTEOPOROSIS
     Dosage: 20 UG/1 DAY
     Dates: start: 20040219
  2. METHOTREXATE [Concomitant]
  3. NORPACE CR [Concomitant]
  4. ZOMIG [Concomitant]
  5. GLUCOSAMINE [Concomitant]

REACTIONS (6)
  - ASTHENIA [None]
  - CYSTITIS [None]
  - HEADACHE [None]
  - HEART RATE IRREGULAR [None]
  - INFLUENZA [None]
  - PAIN [None]
